FAERS Safety Report 25322227 (Version 1)
Quarter: 2025Q2

REPORT INFORMATION
  Report Type: Spontaneous
  Country: SA (occurrence: SA)
  Receive Date: 20250516
  Receipt Date: 20250516
  Transmission Date: 20250717
  Serious: Yes (Death, Other)
  Sender: ZYDUS PHARM
  Company Number: SA-CADILA HEALTHCARE LIMITED-SA-ZYDUS-123573

PATIENT

DRUGS (1)
  1. WARFARIN [Suspect]
     Active Substance: WARFARIN
     Indication: Thrombosis prophylaxis
     Route: 065

REACTIONS (1)
  - Ischaemic stroke [Fatal]
